FAERS Safety Report 4910146-7 (Version None)
Quarter: 2006Q1

REPORT INFORMATION
  Report Type: 
  Country: None (occurrence: None)
  Receive Date: 20060209
  Receipt Date: 20060127
  Transmission Date: 20060701
  Serious: Yes (Death)
  Sender: FDA-Public Use
  Company Number: L05-USA-03935-19

PATIENT
  Age: 33 Year
  Sex: Female

DRUGS (6)
  1. DILTIAZEM HCL [Suspect]
  2. SERTRALINE [Suspect]
  3. CYCLOBENZAPRINE HCL [Suspect]
  4. CHLORCYCLIZINE [Suspect]
  5. METHAMPHETAMINE [Suspect]
  6. QUETIAPINE [Suspect]

REACTIONS (14)
  - BODY TEMPERATURE DECREASED [None]
  - COMPLETED SUICIDE [None]
  - DRUG SCREEN POSITIVE [None]
  - DRUG TOXICITY [None]
  - HEART RATE INCREASED [None]
  - HEPATIC NECROSIS [None]
  - HEPATOMEGALY [None]
  - INTERNATIONAL NORMALISED RATIO INCREASED [None]
  - LOSS OF CONSCIOUSNESS [None]
  - MENTAL STATUS CHANGES [None]
  - METABOLIC ACIDOSIS [None]
  - MULTI-ORGAN FAILURE [None]
  - MYDRIASIS [None]
  - MYOCARDIAL INFARCTION [None]
